FAERS Safety Report 5400461-5 (Version None)
Quarter: 2007Q3

REPORT INFORMATION
  Report Type: 
  Country: None (occurrence: None)
  Receive Date: 20070730
  Receipt Date: 20070702
  Transmission Date: 20080115
  Serious: Yes (Death, Hospitalization, Other)
  Sender: FDA-Public Use
  Company Number: US-PFIZER INC-2006080749

PATIENT
  Sex: Female

DRUGS (1)
  1. BEXTRA [Suspect]
     Indication: PAIN IN EXTREMITY
     Dates: start: 20040224, end: 20041019

REACTIONS (9)
  - ARRHYTHMIA [None]
  - BLOOD DISORDER [None]
  - DEHYDRATION [None]
  - EYE DISORDER [None]
  - LACRIMATION INCREASED [None]
  - NERVOUSNESS [None]
  - ODYNOPHAGIA [None]
  - PAIN [None]
  - TREMOR [None]
